FAERS Safety Report 9241205 (Version 1)
Quarter: 2013Q1

REPORT INFORMATION
  Report Type: Spontaneous
  Country: US (occurrence: None)
  Receive Date: 20121120
  Receipt Date: 20121120
  Transmission Date: 20140127
  Serious: No
  Sender: FDA-Public Use
  Company Number: 1000038160

PATIENT
  Age: 74 Year
  Sex: Female

DRUGS (5)
  1. VIIBRYD [Suspect]
     Indication: DEPRESSION
     Route: 048
     Dates: start: 201206, end: 2012
  2. SYNTHROID(LEVOTHYROXINE SODIUM)(LEVOTHYROXINE SODIUM) [Concomitant]
  3. LISINOPRIL(LISINOPRIL)(LISINOPRIL) [Concomitant]
  4. ATIVAN(LORAZEPAM)(LORAZEPAM) [Concomitant]
  5. BENADRYL(DIPHENHYDRAMINE)(DIPHENHYDRAMINE) [Concomitant]

REACTIONS (5)
  - Weight increased [None]
  - Increased appetite [None]
  - Nasal congestion [None]
  - Depression [None]
  - Drug ineffective [None]
